FAERS Safety Report 20223549 (Version 1)
Quarter: 2021Q4

REPORT INFORMATION
  Report Type: Spontaneous
  Country: FR (occurrence: None)
  Receive Date: 20211223
  Receipt Date: 20211223
  Transmission Date: 20220303
  Serious: Yes (Hospitalization)
  Sender: FDA-Public Use
  Company Number: 2021A875323

PATIENT
  Age: 59 Year
  Sex: Male

DRUGS (1)
  1. TAGRISSO [Suspect]
     Active Substance: OSIMERTINIB
     Indication: Lung adenocarcinoma
     Dosage: 80 MG/J
     Route: 048
     Dates: start: 20210825, end: 20210913

REACTIONS (1)
  - Corneal perforation [Recovering/Resolving]

NARRATIVE: CASE EVENT DATE: 20210907
